FAERS Safety Report 15073914 (Version 1)
Quarter: 2018Q2

REPORT INFORMATION
  Report Type: Spontaneous
  Country: CA (occurrence: CA)
  Receive Date: 20180627
  Receipt Date: 20180627
  Transmission Date: 20180711
  Serious: Yes (Hospitalization, Other)
  Sender: FDA-Public Use
  Company Number: CA-BAYER-2018-119346

PATIENT
  Age: 14 Year

DRUGS (4)
  1. RESTORALAX [Suspect]
     Active Substance: POLYETHYLENE GLYCOL 3350
     Indication: CONSTIPATION
     Dosage: A TEASPOON 3 TIMES A WEEK
     Dates: start: 2016
  2. IRON [Concomitant]
     Active Substance: IRON
  3. PREVACID [Concomitant]
     Active Substance: LANSOPRAZOLE
     Dosage: UNK
     Dates: end: 2018
  4. PANTALOC [Concomitant]

REACTIONS (1)
  - Seizure [None]
